FAERS Safety Report 22948686 (Version 2)
Quarter: 2025Q2

REPORT INFORMATION
  Report Type: Spontaneous
  Country: US (occurrence: US)
  Receive Date: 20230915
  Receipt Date: 20250523
  Transmission Date: 20250716
  Serious: No
  Sender: SANOFI AVENTIS
  Company Number: US-SA-SAC20230913000298

PATIENT
  Age: 13 Year
  Sex: Male

DRUGS (8)
  1. DUPIXENT [Suspect]
     Active Substance: DUPILUMAB
     Indication: Eosinophilic gastritis
     Dosage: 300 MG, QW
     Route: 058
     Dates: start: 20230701
  2. DUPIXENT [Suspect]
     Active Substance: DUPILUMAB
     Indication: Gastroenteritis
  3. ALBUTEROL SULFATE [Concomitant]
     Active Substance: ALBUTEROL SULFATE
  4. BUDESONIDE [Concomitant]
     Active Substance: BUDESONIDE
  5. BUDESONIDE [Concomitant]
     Active Substance: BUDESONIDE
  6. FLOVENT [Concomitant]
     Active Substance: FLUTICASONE PROPIONATE
  7. FLOVENT HFA [Concomitant]
     Active Substance: FLUTICASONE PROPIONATE
  8. OMEPRAZOLE [Concomitant]
     Active Substance: OMEPRAZOLE

REACTIONS (3)
  - Impaired quality of life [Unknown]
  - Injection site reaction [Unknown]
  - Drug ineffective for unapproved indication [Unknown]

NARRATIVE: CASE EVENT DATE: 20230101
